FAERS Safety Report 4704990-9 (Version None)
Quarter: 2005Q3

REPORT INFORMATION
  Report Type: 
  Country: None (occurrence: None)
  Receive Date: 20050701
  Receipt Date: 20050620
  Transmission Date: 20060218
  Serious: Yes (Hospitalization)
  Sender: FDA-Public Use
  Company Number: US-BRISTOL-MYERS SQUIBB COMPANY-13008867

PATIENT
  Age: 78 Year
  Sex: Female

DRUGS (3)
  1. DOXORUBICIN [Suspect]
     Indication: CARCINOID TUMOUR OF THE SMALL BOWEL
  2. CISPLATIN [Concomitant]
     Indication: CARCINOID TUMOUR OF THE SMALL BOWEL
  3. MITOMYCIN [Concomitant]
     Indication: CARCINOID TUMOUR OF THE SMALL BOWEL

REACTIONS (6)
  - ACUTE PULMONARY OEDEMA [None]
  - CARDIAC ENZYMES INCREASED [None]
  - LACTIC ACIDOSIS [None]
  - LEFT VENTRICULAR FAILURE [None]
  - RENAL FAILURE [None]
  - VENTRICULAR DYSFUNCTION [None]
